FAERS Safety Report 10175476 (Version 1)
Quarter: 2014Q2

REPORT INFORMATION
  Report Type: Spontaneous
  Country: CA (occurrence: CA)
  Receive Date: 20140515
  Receipt Date: 20140515
  Transmission Date: 20141212
  Serious: Yes (Hospitalization)
  Sender: FDA-Public Use
  Company Number: PHHY2014CA056212

PATIENT
  Age: 38 Year
  Sex: Female

DRUGS (2)
  1. DIPHENHYDRAMINE HCL INJ USP [Suspect]
     Dosage: 50 MG, UNK
     Route: 042
  2. ISOVUE MULTIPK-370 [Suspect]
     Dosage: 60 MG, UNK
     Route: 042

REACTIONS (6)
  - Dyspnoea [Recovering/Resolving]
  - Injection site pain [Recovering/Resolving]
  - Throat tightness [Recovering/Resolving]
  - Unresponsive to stimuli [Recovering/Resolving]
  - Urticaria [Recovering/Resolving]
  - Loss of consciousness [Recovering/Resolving]
